FAERS Safety Report 14609749 (Version 4)
Quarter: 2018Q4

REPORT INFORMATION
  Report Type: Spontaneous
  Country: GB (occurrence: CA)
  Receive Date: 20180307
  Receipt Date: 20181001
  Transmission Date: 20190204
  Serious: Yes (Other)
  Sender: FDA-Public Use
  Company Number: GB-TAKEDA-2018TUS005225

PATIENT
  Age: 53 Year
  Sex: Male

DRUGS (11)
  1. ENTYVIO [Suspect]
     Active Substance: VEDOLIZUMAB
     Indication: COLITIS ULCERATIVE
     Dosage: UNK
     Route: 042
  2. CORTIFOAM [Concomitant]
     Active Substance: HYDROCORTISONE ACETATE
     Indication: COLITIS ULCERATIVE
     Dosage: UNK
     Route: 065
  3. MESALAMINE. [Concomitant]
     Active Substance: MESALAMINE
     Indication: COLITIS ULCERATIVE
     Dosage: UNK
     Route: 065
     Dates: start: 20170101, end: 20170901
  4. HYDROCORTISONE ACETATE. [Concomitant]
     Active Substance: HYDROCORTISONE ACETATE
     Dosage: UNK
  5. PREDNISONE. [Concomitant]
     Active Substance: PREDNISONE
     Indication: COLITIS ULCERATIVE
     Dosage: UNK
     Route: 065
  6. ASACOL [Concomitant]
     Active Substance: MESALAMINE
     Indication: COLITIS ULCERATIVE
     Dosage: 3 TABLETS TWO TIMES A DAY
     Route: 065
     Dates: start: 20161001
  7. SULFASALAZINE. [Concomitant]
     Active Substance: SULFASALAZINE
     Indication: COLITIS ULCERATIVE
     Dosage: UNK
     Route: 065
     Dates: start: 20090101, end: 20160101
  8. INFLIXIMAB [Concomitant]
     Active Substance: INFLIXIMAB
     Indication: COLITIS ULCERATIVE
     Dosage: UNK
     Route: 042
  9. MESALAZINE [Concomitant]
     Active Substance: MESALAMINE
     Dosage: UNK
  10. CORTIMENT MMX [Suspect]
     Active Substance: BUDESONIDE
     Indication: COLITIS ULCERATIVE
     Dosage: UNK UNK, Q8WEEKS
     Route: 048
     Dates: start: 201707
  11. MEZAVANT [Concomitant]
     Active Substance: MESALAMINE
     Indication: COLITIS ULCERATIVE
     Dosage: UNK
     Route: 065
     Dates: start: 20160101, end: 20161001

REACTIONS (6)
  - Weight decreased [Unknown]
  - Drug ineffective [Unknown]
  - Bronchiectasis [Unknown]
  - Loss of personal independence in daily activities [Unknown]
  - Colitis ulcerative [Unknown]
  - Deep vein thrombosis [Unknown]
